FAERS Safety Report 7808757-4 (Version None)
Quarter: 2011Q4

REPORT INFORMATION
  Report Type: 
  Country: None (occurrence: None)
  Receive Date: 20111007
  Receipt Date: 20110926
  Transmission Date: 20120403
  Serious: Yes (Hospitalization)
  Sender: FDA-Public Use
  Company Number: IR-ACCORD-010814

PATIENT
  Age: 79 Year
  Sex: Male

DRUGS (2)
  1. TOPIRAMATE [Suspect]
     Indication: ESSENTIAL TREMOR
     Dosage: 50.00-MG-1.0DAYS
  2. PROPRANOLOL [Concomitant]

REACTIONS (3)
  - OFF LABEL USE [None]
  - CHOROIDAL DETACHMENT [None]
  - AGE-RELATED MACULAR DEGENERATION [None]
